FAERS Safety Report 7551208-8 (Version None)
Quarter: 2011Q2

REPORT INFORMATION
  Report Type: 
  Country: None (occurrence: None)
  Receive Date: 20110616
  Receipt Date: 20110603
  Transmission Date: 20111010
  Serious: Yes (Hospitalization, Other)
  Sender: FDA-Public Use
  Company Number: PHFR2011IE02900

PATIENT
  Sex: Female

DRUGS (5)
  1. CLOZAPINE [Suspect]
     Indication: SCHIZOPHRENIA
     Dosage: 275 MG/DAY
     Route: 048
     Dates: start: 20110310, end: 20110505
  2. CALCICHEW [Concomitant]
     Dosage: 1 TABLET/DAY
     Route: 048
  3. LAMOTRIGINE [Concomitant]
     Dosage: 200 MG/DAY
     Route: 048
  4. VALDOXAN [Concomitant]
     Dosage: 50 MG/DAY
     Route: 048
  5. COD-LIVER OIL [Concomitant]
     Dosage: 1 TABLET/DAY
     Route: 048

REACTIONS (6)
  - RASH PRURITIC [None]
  - TACHYCARDIA [None]
  - HYPERSENSITIVITY [None]
  - RASH ERYTHEMATOUS [None]
  - PYREXIA [None]
  - FIBRIN D DIMER INCREASED [None]
